FAERS Safety Report 23247350 (Version 1)
Quarter: 2023Q4

REPORT INFORMATION
  Report Type: Spontaneous
  Country: IT (occurrence: None)
  Receive Date: 20231130
  Receipt Date: 20231130
  Transmission Date: 20240110
  Serious: Yes (Hospitalization)
  Sender: FDA-Public Use
  Company Number: 2023A268710

PATIENT
  Age: 57 Year
  Sex: Male

DRUGS (2)
  1. QUETIAPINE FUMARATE [Suspect]
     Active Substance: QUETIAPINE FUMARATE
     Dosage: DOSAGE: 650 UNIT OF MEASURE: MILLIGRAMS FREQUENCY OF ADMINISTRATION: TOTAL ADMINISTRATION ROUTE: ...
     Route: 048
     Dates: start: 20231113, end: 20231113
  2. OLANZAPINE [Suspect]
     Active Substance: OLANZAPINE
     Dosage: DOSAGE: 15 UNITS OF MEASUREMENT: MILLIGRAMS FREQUENCY OF ADMINISTRATION: TOTAL ADMINISTRATION ROU...
     Route: 048
     Dates: start: 20231113, end: 20231113

REACTIONS (3)
  - Miosis [Unknown]
  - Photophobia [Recovering/Resolving]
  - Drug abuse [Unknown]

NARRATIVE: CASE EVENT DATE: 20231113
